FAERS Safety Report 4533687-3 (Version None)
Quarter: 2004Q4

REPORT INFORMATION
  Report Type: 
  Country: None (occurrence: None)
  Receive Date: 20041221
  Receipt Date: 20041208
  Transmission Date: 20050328
  Serious: Yes (Other)
  Sender: FDA-Public Use
  Company Number: JPKYO-S-20040043

PATIENT
  Age: 57 Year
  Sex: Male

DRUGS (3)
  1. NAVELBINE [Suspect]
     Indication: NON-SMALL CELL LUNG CANCER
     Route: 042
     Dates: start: 20010301, end: 20010329
  2. GEMZAR [Concomitant]
     Indication: NON-SMALL CELL LUNG CANCER
     Dates: start: 20010301
  3. KYTRIL [Concomitant]
     Dates: start: 20010301, end: 20010329

REACTIONS (4)
  - ERYTHROPENIA [None]
  - HAEMOGLOBIN DECREASED [None]
  - LEUKOPENIA [None]
  - NEUTROPENIA [None]
